FAERS Safety Report 8625666-1 (Version None)
Quarter: 2012Q3

REPORT INFORMATION
  Report Type: 
  Country: None (occurrence: None)
  Receive Date: 20120827
  Receipt Date: 20120823
  Transmission Date: 20120928
  Serious: Yes (Other)
  Sender: FDA-Public Use
  Company Number: US-JNJFOC-20120507364

PATIENT
  Sex: Female
  Weight: 97.98 kg

DRUGS (15)
  1. SIMPONI [Suspect]
     Route: 058
     Dates: start: 20120423, end: 20120423
  2. SPIRONOLACTONE [Concomitant]
     Indication: BLOOD PRESSURE ABNORMAL
     Route: 048
  3. METHOTREXATE [Concomitant]
     Indication: MOUTH ULCERATION
     Route: 065
  4. PROAIR HFA [Concomitant]
     Indication: ASTHMA
     Route: 055
  5. METHOTREXATE [Concomitant]
     Route: 065
     Dates: start: 20060101, end: 20120118
  6. SIMPONI [Suspect]
     Indication: PSORIATIC ARTHROPATHY
     Route: 058
     Dates: start: 20120423, end: 20120423
  7. LEVOTHYROXINE SODIUM [Concomitant]
     Indication: THYROID DISORDER
     Route: 048
  8. AMBIEN [Concomitant]
     Indication: INSOMNIA
     Dosage: NIGHTLY AS NEEDED
     Route: 048
  9. SIMPONI [Suspect]
     Indication: RHEUMATOID ARTHRITIS
     Route: 058
     Dates: start: 20120415
  10. HYDROCHLOROTHIAZIDE [Concomitant]
     Indication: BLOOD PRESSURE ABNORMAL
     Route: 048
  11. DIPROLENE [Concomitant]
     Indication: PSORIASIS
     Dosage: TO BE APPLIED THREE TIMES IN A DAY
     Route: 065
  12. FOLIC ACID [Concomitant]
     Route: 048
  13. SIMPONI [Suspect]
     Route: 058
     Dates: start: 20120415
  14. IBUPROFEN [Concomitant]
     Indication: PAIN
     Dosage: AS NEEDED
     Route: 048
  15. CLONAZEPAM [Concomitant]
     Dosage: 1-4 AT BEDTIME AS NEEDED
     Route: 048

REACTIONS (9)
  - HYPERSENSITIVITY [None]
  - ANXIETY [None]
  - HAEMORRHAGE [None]
  - ABDOMINAL PAIN UPPER [None]
  - MIGRAINE [None]
  - OEDEMA PERIPHERAL [None]
  - RHINITIS ALLERGIC [None]
  - ASTHMA [None]
  - SWELLING [None]
